FAERS Safety Report 8573216-0 (Version None)
Quarter: 2012Q3

REPORT INFORMATION
  Report Type: 
  Country: None (occurrence: None)
  Receive Date: 20120806
  Receipt Date: 20120803
  Transmission Date: 20120928
  Serious: Yes (Other)
  Sender: FDA-Public Use
  Company Number: US-PFIZER INC-2012138729

PATIENT
  Age: 47 Year
  Sex: Female

DRUGS (2)
  1. PRISTIQ [Suspect]
     Indication: DEPRESSION
     Dosage: 50 MG, 1X/DAY
     Route: 048
     Dates: start: 20111108, end: 20111114
  2. EFFEXOR XR [Concomitant]
     Indication: DEPRESSION
     Dosage: 75 MG, UNK
     Dates: start: 20111019, end: 20111108

REACTIONS (1)
  - GRAND MAL CONVULSION [None]
